FAERS Safety Report 8880650 (Version 1)
Quarter: 2012Q4

REPORT INFORMATION
  Report Type: 
  Country: US (occurrence: US)
  Receive Date: 20121101
  Receipt Date: 20121101
  Transmission Date: 20130627
  Serious: Yes (Other)
  Sender: FDA-Public Use
  Company Number: US-ASTRAZENECA-2012SE81146

PATIENT
  Sex: Male

DRUGS (3)
  1. CRESTOR [Suspect]
     Route: 048
  2. INVANZ [Concomitant]
     Indication: INFECTION
  3. ZYVOX [Concomitant]
     Indication: INFECTION

REACTIONS (1)
  - Osteomyelitis [Unknown]
